FAERS Safety Report 25089331 (Version 1)
Quarter: 2025Q1

REPORT INFORMATION
  Report Type: Spontaneous
  Country: US (occurrence: None)
  Receive Date: 20250317
  Receipt Date: 20250317
  Transmission Date: 20250409
  Serious: Yes (Hospitalization, Other)
  Sender: FDA-CTU
  Company Number: None

PATIENT
  Age: 49 Year
  Sex: Female
  Weight: 81 kg

DRUGS (5)
  1. ARIPIPRAZOLE [Suspect]
     Active Substance: ARIPIPRAZOLE
     Indication: Bipolar disorder
     Route: 048
     Dates: start: 20160101
  2. METOPROLOL [Concomitant]
     Active Substance: METOPROLOL
  3. PRIMIDONE [Concomitant]
     Active Substance: PRIMIDONE
  4. VITAMIN D3 [Concomitant]
     Active Substance: CHOLECALCIFEROL
  5. VITAMINS [Concomitant]
     Active Substance: VITAMINS

REACTIONS (3)
  - Vomiting [None]
  - Dizziness [None]
  - Inguinal hernia [None]
